FAERS Safety Report 5579069-7 (Version None)
Quarter: 2007Q4

REPORT INFORMATION
  Report Type: 
  Country: None (occurrence: None)
  Receive Date: 20071221
  Receipt Date: 20071211
  Transmission Date: 20080405
  Serious: Yes (Hospitalization)
  Sender: FDA-Public Use
  Company Number: CHNY2007NL04029

PATIENT
  Age: 38 Year
  Sex: Female

DRUGS (1)
  1. CLEMASTINE FUMARATE [Suspect]
     Indication: ALLERGY TEST
     Dosage: 1.5 MG, ONCE/SINGLE, ORAL
     Route: 048
     Dates: start: 20061219, end: 20061219

REACTIONS (5)
  - DRUG HYPERSENSITIVITY [None]
  - FEELING OF BODY TEMPERATURE CHANGE [None]
  - MALAISE [None]
  - SOMNOLENCE [None]
  - URTICARIA [None]
